FAERS Safety Report 25094801 (Version 1)
Quarter: 2025Q1

REPORT INFORMATION
  Report Type: Spontaneous
  Country: US (occurrence: US)
  Receive Date: 20250319
  Receipt Date: 20250319
  Transmission Date: 20250409
  Serious: No
  Sender: CIPLA
  Company Number: US-CIPLA LTD.-2025US03107

PATIENT

DRUGS (1)
  1. DICLOFENAC [Suspect]
     Active Substance: DICLOFENAC
     Indication: Spondylitis
     Dosage: UNK, TID (3 TIMES A DAY AND RUB IT IN)
     Route: 065

REACTIONS (1)
  - Off label use [Unknown]
